FAERS Safety Report 23627035 (Version 1)
Quarter: 2024Q1

REPORT INFORMATION
  Report Type: Spontaneous
  Country: CN (occurrence: CN)
  Receive Date: 20240313
  Receipt Date: 20240313
  Transmission Date: 20240410
  Serious: Yes (Life-Threatening, Hospitalization, Other)
  Sender: FDA-Public Use
  Company Number: CN-PFIZER INC-PV202400033616

PATIENT
  Age: 47 Year
  Sex: Female

DRUGS (4)
  1. PALBOCICLIB [Suspect]
     Active Substance: PALBOCICLIB
     Indication: Acute myeloid leukaemia
     Dosage: 100 MG, DAILY D1-15
     Dates: start: 20210723
  2. VENETOCLAX [Suspect]
     Active Substance: VENETOCLAX
     Indication: Acute myeloid leukaemia
     Dosage: 400 MG D1-14
     Dates: start: 20210723
  3. VENETOCLAX [Suspect]
     Active Substance: VENETOCLAX
     Dosage: 200 MG D15-28
  4. AZACITIDINE [Suspect]
     Active Substance: AZACITIDINE
     Indication: Acute myeloid leukaemia
     Dosage: 75 MG/M2 D1-7
     Dates: start: 20210723

REACTIONS (3)
  - Myelosuppression [Recovering/Resolving]
  - Pneumonia [Recovered/Resolved]
  - Off label use [Unknown]
